FAERS Safety Report 9353937 (Version 1)
Quarter: 2013Q2

REPORT INFORMATION
  Report Type: Spontaneous
  Country: US (occurrence: US)
  Receive Date: 20130618
  Receipt Date: 20130618
  Transmission Date: 20140414
  Serious: Yes (Other)
  Sender: FDA-Public Use
  Company Number: US-JNJFOC-20130611457

PATIENT
  Sex: Male
  Weight: 95.26 kg

DRUGS (6)
  1. RISPERDAL [Suspect]
     Indication: SCHIZOAFFECTIVE DISORDER
     Route: 048
     Dates: start: 200703, end: 2007
  2. RISPERDAL [Suspect]
     Indication: SCHIZOAFFECTIVE DISORDER
     Route: 048
     Dates: start: 2007, end: 2007
  3. ZOLOFT [Concomitant]
     Indication: ANXIETY
     Route: 048
     Dates: start: 2007
  4. ZOLOFT [Concomitant]
     Indication: DEPRESSION
     Route: 048
     Dates: start: 2007
  5. LORAZEPAM [Concomitant]
     Indication: ANXIETY
     Route: 048
     Dates: start: 2007
  6. NEURONTIN [Concomitant]
     Indication: ANXIETY
     Route: 048
     Dates: start: 20130530

REACTIONS (3)
  - Adenoma benign [Recovering/Resolving]
  - Blood prolactin increased [Recovered/Resolved]
  - Headache [Recovered/Resolved]
